FAERS Safety Report 13455160 (Version 1)
Quarter: 2017Q2

REPORT INFORMATION
  Report Type: Spontaneous
  Country: US (occurrence: US)
  Receive Date: 20170418
  Receipt Date: 20170418
  Transmission Date: 20170830
  Serious: Yes (Other)
  Sender: FDA-Public Use
  Company Number: US-TEVA-760883USA

PATIENT
  Age: 46 Year
  Sex: Female
  Weight: 79.45 kg

DRUGS (17)
  1. COPAXONE [Suspect]
     Active Substance: GLATIRAMER ACETATE
     Dosage: UNKNOWN FORM STRENGTH
  2. MULTIVITAMINS [Concomitant]
     Active Substance: VITAMINS
  3. MARINOL [Concomitant]
     Active Substance: DRONABINOL
  4. CYMBALTA [Concomitant]
     Active Substance: DULOXETINE HYDROCHLORIDE
  5. POTASSIUM CHLORIDE. [Concomitant]
     Active Substance: POTASSIUM CHLORIDE
  6. VYTORIN [Suspect]
     Active Substance: EZETIMIBE\SIMVASTATIN
     Dosage: 10/20
  7. AMBIEN CR [Concomitant]
     Active Substance: ZOLPIDEM TARTRATE
  8. VITAMIN B1 [Concomitant]
     Active Substance: THIAMINE HYDROCHLORIDE
  9. ZANAFLEX [Concomitant]
     Active Substance: TIZANIDINE HYDROCHLORIDE
  10. MIRAPEX [Concomitant]
     Active Substance: PRAMIPEXOLE DIHYDROCHLORIDE
  11. COQ10 [Concomitant]
     Active Substance: UBIDECARENONE
     Dates: start: 200710
  12. CYTOMEL [Concomitant]
     Active Substance: LIOTHYRONINE SODIUM
  13. HYDROCODONE [Concomitant]
     Active Substance: HYDROCODONE
  14. ACETYL-L-CARNITINE [Concomitant]
     Dates: start: 200710
  15. VITAMIN B12 [Concomitant]
     Active Substance: CYANOCOBALAMIN
  16. LASIX [Concomitant]
     Active Substance: FUROSEMIDE
  17. DIOVAN [Concomitant]
     Active Substance: VALSARTAN

REACTIONS (25)
  - Hypothyroidism [Unknown]
  - Pain in extremity [Not Recovered/Not Resolved]
  - Musculoskeletal stiffness [Not Recovered/Not Resolved]
  - Musculoskeletal pain [Not Recovered/Not Resolved]
  - Fibromyalgia [Unknown]
  - Erythromelalgia [Unknown]
  - Complex regional pain syndrome [Unknown]
  - Chronic inflammatory demyelinating polyradiculoneuropathy [Unknown]
  - Gait disturbance [Not Recovered/Not Resolved]
  - Blood uric acid increased [Unknown]
  - Burning sensation [Not Recovered/Not Resolved]
  - Drug ineffective [Unknown]
  - Dyspnoea [Unknown]
  - Weight increased [Unknown]
  - Thyroxine free decreased [Unknown]
  - Hyperaesthesia [Not Recovered/Not Resolved]
  - Polyneuropathy [Unknown]
  - Thyroxine decreased [Unknown]
  - Fatigue [Not Recovered/Not Resolved]
  - Pain [Not Recovered/Not Resolved]
  - Small fibre neuropathy [Unknown]
  - Heart rate increased [Unknown]
  - Oedema [Not Recovered/Not Resolved]
  - Multiple sclerosis [Not Recovered/Not Resolved]
  - Muscle spasticity [Not Recovered/Not Resolved]

NARRATIVE: CASE EVENT DATE: 2007
